FAERS Safety Report 11330084 (Version 1)
Quarter: 2015Q3

REPORT INFORMATION
  Report Type: Spontaneous
  Country: FR (occurrence: FR)
  Receive Date: 20150803
  Receipt Date: 20150803
  Transmission Date: 20151125
  Serious: Yes (Hospitalization)
  Sender: FDA-Public Use
  Company Number: FR-PFIZER INC-2015250885

PATIENT
  Age: 68 Year
  Sex: Female

DRUGS (6)
  1. SALAZOPYRINE [Suspect]
     Active Substance: SULFASALAZINE
     Dosage: UNK
     Route: 048
     Dates: start: 20150519, end: 20150529
  2. PANTOPRAZOLE [Suspect]
     Active Substance: PANTOPRAZOLE SODIUM
     Dosage: UNK
     Route: 048
     Dates: start: 20150519, end: 20150529
  3. PINAVERIUM [Concomitant]
     Active Substance: PINAVERIUM BROMIDE
  4. LODOZ [Concomitant]
     Active Substance: BISOPROLOL FUMARATE\HYDROCHLOROTHIAZIDE
  5. MACROGOL [Concomitant]
     Active Substance: POLYETHYLENE GLYCOLS
  6. SPASFON /00765801/ [Concomitant]
     Active Substance: PHLOROGLUCINOL\1,3,5-TRIMETHOXYBENZENE

REACTIONS (2)
  - Vascular purpura [Recovering/Resolving]
  - Cystitis [Unknown]

NARRATIVE: CASE EVENT DATE: 201505
